FAERS Safety Report 16383893 (Version 1)
Quarter: 2019Q2

REPORT INFORMATION
  Report Type: Spontaneous
  Country: US (occurrence: US)
  Receive Date: 20190531
  Receipt Date: 20190531
  Transmission Date: 20190711
  Serious: Yes (Death)
  Sender: FDA-Public Use
  Company Number: None

PATIENT
  Age: 69 Year
  Sex: Male
  Weight: 83.25 kg

DRUGS (2)
  1. GLEEVEC [Suspect]
     Active Substance: IMATINIB MESYLATE
     Indication: GASTROINTESTINAL STROMAL TUMOUR
     Route: 048
     Dates: start: 20190305, end: 20190516
  2. GLEEVEC [Concomitant]
     Active Substance: IMATINIB MESYLATE
     Dates: start: 20190305, end: 20190516

REACTIONS (1)
  - Death [None]

NARRATIVE: CASE EVENT DATE: 20190516
